FAERS Safety Report 23213961 (Version 1)
Quarter: 2023Q4

REPORT INFORMATION
  Report Type: Spontaneous
  Country: US (occurrence: None)
  Receive Date: 20231121
  Receipt Date: 20231121
  Transmission Date: 20240110
  Serious: Yes (Other)
  Sender: FDA-Public Use
  Company Number: None

PATIENT
  Age: 59 Year
  Sex: Male
  Weight: 80 kg

DRUGS (2)
  1. HECTOROL [Suspect]
     Active Substance: DOXERCALCIFEROL
     Indication: Hyperparathyroidism secondary
     Dosage: FREQUENCY : ONCE;?
     Route: 040
     Dates: start: 20231110, end: 20231110
  2. Calcitriol 1.75mcg PO [Concomitant]

REACTIONS (4)
  - Dyspnoea [None]
  - Blood pressure increased [None]
  - Heart rate decreased [None]
  - Drug hypersensitivity [None]

NARRATIVE: CASE EVENT DATE: 20231110
